FAERS Safety Report 7405057-1 (Version None)
Quarter: 2011Q2

REPORT INFORMATION
  Report Type: 
  Country: None (occurrence: None)
  Receive Date: 20110411
  Receipt Date: 20110401
  Transmission Date: 20111010
  Serious: Yes (Hospitalization)
  Sender: FDA-Public Use
  Company Number: FR-ASTELLAS-2010EU006813

PATIENT
  Sex: Male

DRUGS (1)
  1. VESICARE [Suspect]
     Indication: PROSTATE CANCER
     Dosage: 5 MG, UNKNOWN/D
     Route: 065
     Dates: start: 20101015

REACTIONS (4)
  - ACUTE PULMONARY OEDEMA [None]
  - GENERALISED OEDEMA [None]
  - ANGIOEDEMA [None]
  - DRY SKIN [None]
